FAERS Safety Report 11338725 (Version 1)
Quarter: 2015Q3

REPORT INFORMATION
  Report Type: Spontaneous
  Country: US (occurrence: US)
  Receive Date: 20150803
  Receipt Date: 20150803
  Transmission Date: 20151125
  Serious: No
  Sender: FDA-Public Use
  Company Number: US-ELI_LILLY_AND_COMPANY-US200803001460

PATIENT
  Age: 10 Year
  Sex: Male
  Weight: 45.81 kg

DRUGS (9)
  1. MELATONIN [Concomitant]
     Active Substance: MELATONIN
     Dosage: 3 MG, EACH EVENING
     Dates: start: 20071113
  2. MELATONIN [Concomitant]
     Active Substance: MELATONIN
     Dosage: 1.5 MG, EACH EVENING
     Dates: start: 20070918, end: 20071112
  3. STRATTERA [Suspect]
     Active Substance: ATOMOXETINE HYDROCHLORIDE
     Dosage: 60 MG, DAILY (1/D)
     Dates: start: 20071113, end: 200801
  4. TRILEPTAL [Concomitant]
     Active Substance: OXCARBAZEPINE
     Dosage: 300 MG, 2/D
     Dates: start: 20071113
  5. STRATTERA [Suspect]
     Active Substance: ATOMOXETINE HYDROCHLORIDE
     Dosage: 10 MG, DAILY (1/D)
     Dates: start: 20080314
  6. XOPENEX [Concomitant]
     Active Substance: LEVALBUTEROL HYDROCHLORIDE
     Dates: start: 20071113
  7. FLOVENT [Concomitant]
     Active Substance: FLUTICASONE PROPIONATE
     Dates: start: 20071113
  8. STRATTERA [Suspect]
     Active Substance: ATOMOXETINE HYDROCHLORIDE
     Indication: ATTENTION DEFICIT/HYPERACTIVITY DISORDER
     Dosage: 60 MG, UNK
     Dates: start: 20070918, end: 20071112
  9. TRILEPTAL [Concomitant]
     Active Substance: OXCARBAZEPINE
     Dosage: 300 MG, DAILY (1/D)
     Dates: start: 20070918, end: 20071112

REACTIONS (7)
  - Blood cholesterol increased [Not Recovered/Not Resolved]
  - Thyroxine decreased [Unknown]
  - Blood urea nitrogen/creatinine ratio increased [Recovering/Resolving]
  - Hepatic enzyme increased [Recovered/Resolved]
  - Renal function test abnormal [Recovered/Resolved]
  - Blood sodium decreased [Unknown]
  - Blood glucose increased [Recovering/Resolving]

NARRATIVE: CASE EVENT DATE: 20071204
